FAERS Safety Report 25272169 (Version 1)
Quarter: 2025Q2

REPORT INFORMATION
  Report Type: Spontaneous
  Country: SK (occurrence: SK)
  Receive Date: 20250506
  Receipt Date: 20250506
  Transmission Date: 20250717
  Serious: Yes (Other)
  Sender: AMGEN
  Company Number: SK-ABBVIE-6253229

PATIENT
  Age: 39 Year
  Sex: Male

DRUGS (1)
  1. ADALIMUMAB [Suspect]
     Active Substance: ADALIMUMAB
     Indication: Psoriatic arthropathy
     Route: 058
     Dates: start: 202101, end: 202311

REACTIONS (4)
  - Leukopenia [Unknown]
  - Liver disorder [Unknown]
  - Unevaluable event [Unknown]
  - Psoriasis [Unknown]
